FAERS Safety Report 5988957-9 (Version None)
Quarter: 2008Q4

REPORT INFORMATION
  Report Type: 
  Country: None (occurrence: None)
  Receive Date: 20081209
  Receipt Date: 20081209
  Transmission Date: 20090506
  Serious: Yes (Other)
  Sender: FDA-Public Use
  Company Number: None

PATIENT
  Age: 29 Year
  Sex: Female
  Weight: 67.1324 kg

DRUGS (4)
  1. TOPAMAX [Suspect]
     Indication: AFFECTIVE DISORDER
     Dosage: 25MG PILLS 2 TIMES DAILY PO
     Route: 048
     Dates: start: 20061101, end: 20071001
  2. TOPAMAX [Suspect]
     Indication: WEIGHT CONTROL
     Dosage: 25MG PILLS 2 TIMES DAILY PO
     Route: 048
     Dates: start: 20061101, end: 20071001
  3. TOPAMAX [Suspect]
     Indication: AFFECTIVE DISORDER
     Dosage: 25MG PILLS 2 TIMES DAILY PO
     Route: 048
     Dates: start: 20080101, end: 20080115
  4. TOPAMAX [Suspect]
     Indication: WEIGHT CONTROL
     Dosage: 25MG PILLS 2 TIMES DAILY PO
     Route: 048
     Dates: start: 20080101, end: 20080115

REACTIONS (7)
  - ACNE [None]
  - CHILLS [None]
  - EMOTIONAL DISORDER [None]
  - HYPOHIDROSIS [None]
  - LACRIMATION INCREASED [None]
  - PARAESTHESIA [None]
  - PRURITUS [None]
